FAERS Safety Report 26062038 (Version 3)
Quarter: 2025Q4

REPORT INFORMATION
  Report Type: Spontaneous
  Country: US (occurrence: US)
  Receive Date: 20251119
  Receipt Date: 20251231
  Transmission Date: 20260118
  Serious: No
  Sender: SANOFI AVENTIS
  Company Number: US-SANOFI-02719283

PATIENT
  Age: 52 Year
  Sex: Female
  Weight: 100.23 kg

DRUGS (13)
  1. AUBAGIO [Suspect]
     Active Substance: TERIFLUNOMIDE
     Indication: Multiple sclerosis
     Dosage: 14 MG, QD
     Route: 048
     Dates: start: 2014
  2. AUBAGIO [Suspect]
     Active Substance: TERIFLUNOMIDE
     Dosage: 7 MG, QD
     Route: 048
     Dates: start: 202505
  3. VITAMIN D NOS [Concomitant]
     Active Substance: CHOLECALCIFEROL\ERGOCALCIFEROL
     Dosage: 10000, THRICE A DAY
  4. VITAMIN D NOS [Concomitant]
     Active Substance: CHOLECALCIFEROL\ERGOCALCIFEROL
     Dosage: 5000
  5. VITAMIN K [Concomitant]
     Active Substance: PHYTONADIONE
     Dosage: UNK
  6. VITAMIN B12 [Concomitant]
     Active Substance: CYANOCOBALAMIN
     Dosage: A SHOT
  7. VITAMIN B12 [Concomitant]
     Active Substance: CYANOCOBALAMIN
     Dosage: 1000 MG, QD
     Route: 048
  8. BACLOFEN [Concomitant]
     Active Substance: BACLOFEN
     Dosage: 1 DF, QD MOUTH
     Route: 048
     Dates: start: 20241022, end: 202503
  9. SYSTANE BALANCE [Concomitant]
     Active Substance: PROPYLENE GLYCOL
     Dosage: 1 DF, QD (INSTILL 1 DROP IN BOTH EYES DAILY)
     Route: 047
     Dates: start: 20241022
  10. CALCIUM CARBONATE [Concomitant]
     Active Substance: CALCIUM CARBONATE
     Dosage: 1 DF, QD MOUTH
     Route: 048
     Dates: start: 20241022
  11. VITAMIN D3 + K2 [Concomitant]
     Dosage: 1 DF, BID
     Route: 048
     Dates: start: 20241022
  12. MINERALS\VITAMINS [Concomitant]
     Active Substance: MINERALS\VITAMINS
     Dosage: 1 DF, QD
     Route: 048
     Dates: start: 20241022
  13. MAGNESIUM [Concomitant]
     Active Substance: MAGNESIUM
     Dosage: 2 DF, QD MOUTH
     Route: 048
     Dates: start: 20241022

REACTIONS (6)
  - White coat hypertension [Recovered/Resolved]
  - Hypertension [Recovered/Resolved]
  - Alopecia [Unknown]
  - Blood glucose increased [Unknown]
  - Blood pressure increased [Unknown]
  - Immune system disorder [Unknown]

NARRATIVE: CASE EVENT DATE: 20140101
